FAERS Safety Report 18918689 (Version 2)
Quarter: 2021Q1

REPORT INFORMATION
  Report Type: Report from Study
  Country: US (occurrence: US)
  Receive Date: 20210220
  Receipt Date: 20210305
  Transmission Date: 20210420
  Serious: Yes (Hospitalization)
  Sender: FDA-Public Use
  Company Number: US-ROCHE-2772005

PATIENT
  Age: 64 Year
  Sex: Female

DRUGS (16)
  1. AMBIEN [Concomitant]
     Active Substance: ZOLPIDEM TARTRATE
  2. LOMOTIL [Concomitant]
     Active Substance: ATROPINE SULFATE\DIPHENOXYLATE HYDROCHLORIDE
  3. ADVAIR HFA [Concomitant]
     Active Substance: FLUTICASONE PROPIONATE\SALMETEROL XINAFOATE
  4. IMODIUM [Concomitant]
     Active Substance: LOPERAMIDE HYDROCHLORIDE
  5. ROSUVASTATIN. [Concomitant]
     Active Substance: ROSUVASTATIN
  6. CABOZANTINIB [Suspect]
     Active Substance: CABOZANTINIB
     Indication: NON-SMALL CELL LUNG CANCER
     Dosage: THE MOST RECENT DOSE OF CABOZANTINIB (20 MG ONCE A DAY) WAS RECEIVED PRIOR TO THE ONSET OF EVENT (TR
     Route: 048
     Dates: start: 20190729
  7. LEVOTHYROXINE. [Concomitant]
     Active Substance: LEVOTHYROXINE
  8. CABOZANTINIB [Suspect]
     Active Substance: CABOZANTINIB
     Dosage: THE MOST RECENT DOSE OF CABOZANTINIB (20 MG ONCE A DAY) WAS RECEIVED PRIOR TO THE ONSET OF EVENT (TR
     Route: 048
  9. OMEPRAZOLE. [Concomitant]
     Active Substance: OMEPRAZOLE
  10. SERTRALINE HYDROCHLORIDE. [Concomitant]
     Active Substance: SERTRALINE HYDROCHLORIDE
  11. ATEZOLIZUMAB. [Suspect]
     Active Substance: ATEZOLIZUMAB
     Indication: NON-SMALL CELL LUNG CANCER
     Dosage: THE MOST RECENT DOSE OF ATEZOLIZUMAB (1200 MG ONCE IN 3 WEEKS) WAS RECEIVED PRIOR TO THE ONSET OF EV
     Route: 042
     Dates: start: 20190729
  12. UREA. [Concomitant]
     Active Substance: UREA
  13. CLOBETASOL [Concomitant]
     Active Substance: CLOBETASOL
  14. MAGNESIUM [Concomitant]
     Active Substance: MAGNESIUM
  15. PROCHLORPERAZINE MALEATE. [Concomitant]
     Active Substance: PROCHLORPERAZINE MALEATE
  16. MELATONIN [Concomitant]
     Active Substance: MELATONIN

REACTIONS (1)
  - Transient ischaemic attack [Recovered/Resolved]

NARRATIVE: CASE EVENT DATE: 20210203
